FAERS Safety Report 25311638 (Version 2)
Quarter: 2025Q3

REPORT INFORMATION
  Report Type: Spontaneous
  Country: CA (occurrence: CA)
  Receive Date: 20250514
  Receipt Date: 20250701
  Transmission Date: 20251021
  Serious: Yes (Other)
  Sender: APOTEX
  Company Number: CA-APOTEX-2025AP007192

PATIENT
  Age: 49 Year
  Sex: Female

DRUGS (2)
  1. ALBUTEROL SULFATE [Suspect]
     Active Substance: ALBUTEROL SULFATE
     Indication: Asthma
     Dates: start: 202504, end: 20250503
  2. PANTOPRAZOLE [Concomitant]
     Active Substance: PANTOPRAZOLE
     Indication: Dyspepsia
     Dosage: 40 MILLIGRAM, QD
     Route: 048

REACTIONS (4)
  - Choking [Recovered/Resolved]
  - Foreign body in respiratory tract [Recovered/Resolved]
  - Retching [Recovered/Resolved]
  - Product contamination physical [Unknown]

NARRATIVE: CASE EVENT DATE: 20250503
